FAERS Safety Report 21492597 (Version 3)
Quarter: 2022Q4

REPORT INFORMATION
  Report Type: Spontaneous
  Country: GB (occurrence: GB)
  Receive Date: 20221021
  Receipt Date: 20221118
  Transmission Date: 20230113
  Serious: Yes (Other)
  Sender: FDA-Public Use
  Company Number: GB-AMGEN-GBRSP2022179323

PATIENT
  Age: 11 Year
  Sex: Female
  Weight: 61.7 kg

DRUGS (1)
  1. ADALIMUMAB [Suspect]
     Active Substance: ADALIMUMAB
     Indication: Juvenile idiopathic arthritis
     Dosage: UNK
     Route: 065

REACTIONS (3)
  - Juvenile idiopathic arthritis [Unknown]
  - Fear of injection [Recovered/Resolved]
  - Injection site pain [Unknown]
